FAERS Safety Report 7509641-6 (Version None)
Quarter: 2011Q2

REPORT INFORMATION
  Report Type: 
  Country: None (occurrence: None)
  Receive Date: 20110527
  Receipt Date: 20110519
  Transmission Date: 20111010
  Serious: Yes (Other)
  Sender: FDA-Public Use
  Company Number: JP-ASTRAZENECA-2011SE23566

PATIENT
  Age: 70 Year
  Sex: Male

DRUGS (1)
  1. ECARD COMBINATION [Suspect]
     Indication: HYPERTENSION
     Route: 048
     Dates: start: 20101015, end: 20110419

REACTIONS (1)
  - MELANODERMIA [None]
